FAERS Safety Report 19193914 (Version 1)
Quarter: 2021Q2

REPORT INFORMATION
  Report Type: Other
  Country: NP (occurrence: NP)
  Receive Date: 20210429
  Receipt Date: 20210429
  Transmission Date: 20210717
  Serious: Yes (Hospitalization, Other)
  Sender: FDA-Public Use
  Company Number: NP-NUVO PHARMACEUTICALS INC-2109984

PATIENT
  Age: 71 Year
  Sex: Male

DRUGS (1)
  1. POLYETHYLENE GLYCOL 3350. [Suspect]
     Active Substance: POLYETHYLENE GLYCOL 3350
     Indication: BOWEL PREPARATION
     Route: 065

REACTIONS (3)
  - Cerebral atrophy [Recovering/Resolving]
  - Hyponatraemia [Recovering/Resolving]
  - Generalised tonic-clonic seizure [Recovering/Resolving]
